FAERS Safety Report 21591651 (Version 3)
Quarter: 2022Q4

REPORT INFORMATION
  Report Type: Report from Study
  Country: PE (occurrence: None)
  Receive Date: 20221114
  Receipt Date: 20221122
  Transmission Date: 20230112
  Serious: Yes (Hospitalization, Other)
  Sender: FDA-Public Use
  Company Number: PE-ROCHE-3214329

PATIENT
  Age: 39 Year
  Sex: Female
  Weight: 51 kg

DRUGS (74)
  1. OBINUTUZUMAB [Suspect]
     Active Substance: OBINUTUZUMAB
     Indication: Lupus nephritis
     Dosage: START DATE OF MOST RECENT DOSE OF STUDY DRUG PRIOR TO AE/SAE 03/NOV/2021 9:15 AM?END DATE OF MOST RE
     Route: 042
     Dates: start: 20201105
  2. MYCOPHENOLATE MOFETIL [Suspect]
     Active Substance: MYCOPHENOLATE MOFETIL
     Indication: Lupus nephritis
     Dosage: DOSE LAST STUDY DRUG ADMIN PRIOR AE/SAE 1000 MG?START DATE OF MOST RECENT DOSE OF STUDY DRUG PRIOR T
     Route: 048
     Dates: start: 20201105
  3. OBINUTUZUMAB [Suspect]
     Active Substance: OBINUTUZUMAB
     Indication: Lupus nephritis
     Dosage: START DATE OF MOST RECENT DOSE OF STUDY DRUG, DOSE CONCENTRATION 4 MG/ML PRIOR TO AE 01/JUN/2022 9:1
     Route: 042
     Dates: start: 20220518
  4. HYDROXYCHLOROQUINE [Concomitant]
     Active Substance: HYDROXYCHLOROQUINE
     Indication: Lupus nephritis
     Route: 048
     Dates: start: 20191008
  5. HYDROXYCHLOROQUINE [Concomitant]
     Active Substance: HYDROXYCHLOROQUINE
     Indication: Acute kidney injury
     Route: 048
     Dates: start: 20220928
  6. SACCHAROMYCES CEREVISIAE [Concomitant]
     Active Substance: SACCHAROMYCES CEREVISIAE
     Indication: Diarrhoea
     Route: 048
     Dates: start: 20220420
  7. BISMUTH SUBSALICYLATE [Concomitant]
     Active Substance: BISMUTH SUBSALICYLATE
     Indication: Diarrhoea
     Route: 048
     Dates: start: 20220420
  8. GABAPENTIN [Concomitant]
     Active Substance: GABAPENTIN
     Indication: Back pain
     Route: 048
     Dates: start: 20220628
  9. GABAPENTIN [Concomitant]
     Active Substance: GABAPENTIN
     Indication: Extrapyramidal disorder
  10. TRAMADOL [Concomitant]
     Active Substance: TRAMADOL
     Indication: Abdominal pain
     Route: 048
     Dates: start: 20220909
  11. TRAMADOL [Concomitant]
     Active Substance: TRAMADOL
     Indication: Back pain
     Route: 048
     Dates: start: 20220906, end: 20220911
  12. TRAMADOL [Concomitant]
     Active Substance: TRAMADOL
     Route: 048
     Dates: start: 20220916, end: 20220917
  13. RIFAXIMIN [Concomitant]
     Active Substance: RIFAXIMIN
     Indication: Diarrhoea
     Route: 048
     Dates: start: 20220921
  14. SACCHAROMYCES CEREVISIAE [Concomitant]
     Active Substance: SACCHAROMYCES CEREVISIAE
     Indication: Diarrhoea
     Route: 048
     Dates: start: 20220921
  15. SACCHAROMYCES CEREVISIAE [Concomitant]
     Active Substance: SACCHAROMYCES CEREVISIAE
     Route: 048
     Dates: start: 20210921
  16. BISMUTH SUBSALICYLATE [Concomitant]
     Active Substance: BISMUTH SUBSALICYLATE
     Indication: Diarrhoea
     Route: 048
     Dates: start: 20210921
  17. ENOXAPARIN [Concomitant]
     Active Substance: ENOXAPARIN
     Indication: Abdominal pain
     Route: 058
     Dates: start: 20220916
  18. ENALAPRIL [Concomitant]
     Active Substance: ENALAPRIL
     Indication: Abdominal pain
     Route: 048
     Dates: start: 20220916
  19. ENALAPRIL [Concomitant]
     Active Substance: ENALAPRIL
     Route: 048
     Dates: start: 20200901, end: 20220305
  20. ENALAPRIL [Concomitant]
     Active Substance: ENALAPRIL
     Route: 048
     Dates: start: 20220306, end: 20220425
  21. ENALAPRIL [Concomitant]
     Active Substance: ENALAPRIL
     Route: 048
     Dates: start: 20220426, end: 20220906
  22. METHYLDOPA [Concomitant]
     Active Substance: METHYLDOPA
     Indication: Abdominal pain
     Route: 048
     Dates: start: 20220914
  23. ASPIRIN [Concomitant]
     Active Substance: ASPIRIN
     Indication: Abdominal pain
     Route: 048
     Dates: start: 20220912
  24. ASPIRIN [Concomitant]
     Active Substance: ASPIRIN
     Route: 048
     Dates: start: 20220914, end: 20220917
  25. AMLODIPINE [Concomitant]
     Active Substance: AMLODIPINE BESYLATE
     Indication: Abdominal pain
     Dosage: 10 TAB
     Route: 048
     Dates: start: 20220916
  26. SERTRALINE [Concomitant]
     Active Substance: SERTRALINE HYDROCHLORIDE
     Indication: Abdominal pain
     Route: 048
     Dates: start: 20220914
  27. SODIUM CHLORIDE [Concomitant]
     Active Substance: SODIUM CHLORIDE
     Indication: Acute kidney injury
     Route: 042
     Dates: start: 20220922, end: 20220923
  28. SODIUM CHLORIDE [Concomitant]
     Active Substance: SODIUM CHLORIDE
     Route: 042
     Dates: start: 20220909, end: 20220909
  29. SODIUM CHLORIDE [Concomitant]
     Active Substance: SODIUM CHLORIDE
     Route: 042
     Dates: start: 20220911, end: 20220911
  30. SODIUM BICARBONATE [Concomitant]
     Active Substance: SODIUM BICARBONATE
     Indication: Acute kidney injury
     Dosage: 20 AMPOULE
     Route: 042
     Dates: start: 20220922, end: 20220923
  31. DEXTROSE [Concomitant]
     Active Substance: DEXTROSE
     Indication: Acute kidney injury
     Route: 042
     Dates: start: 20220922, end: 20220923
  32. CEFTRIAXONE [Concomitant]
     Active Substance: CEFTRIAXONE
     Indication: Urinary tract infection
     Route: 042
     Dates: start: 20220922, end: 20220922
  33. CEFTRIAXONE [Concomitant]
     Active Substance: CEFTRIAXONE
     Indication: Acute kidney injury
     Dosage: 2 AMPULE
     Route: 042
     Dates: start: 20221002
  34. OMEPRAZOLE [Concomitant]
     Active Substance: OMEPRAZOLE
     Indication: Acute kidney injury
     Route: 042
     Dates: start: 20220922
  35. TRAMADOL [Concomitant]
     Active Substance: TRAMADOL
     Indication: Acute kidney injury
     Route: 042
     Dates: start: 20220922, end: 20220922
  36. TRAMADOL [Concomitant]
     Active Substance: TRAMADOL
     Route: 042
     Dates: start: 20220923
  37. CALCIUM GLUTAMATE [Concomitant]
     Indication: Acute kidney injury
     Dosage: 1 AMPOULE
     Route: 042
     Dates: start: 20220922, end: 20220927
  38. FUROSEMIDE [Concomitant]
     Active Substance: FUROSEMIDE
     Indication: Acute kidney injury
     Route: 042
     Dates: start: 20220922, end: 20220922
  39. FUROSEMIDE [Concomitant]
     Active Substance: FUROSEMIDE
     Route: 042
     Dates: start: 20220923, end: 20220927
  40. DIMENHYDRINATE [Concomitant]
     Active Substance: DIMENHYDRINATE
     Indication: Acute kidney injury
     Route: 042
     Dates: start: 20220922
  41. DIMENHYDRINATE [Concomitant]
     Active Substance: DIMENHYDRINATE
     Indication: Nausea
     Route: 048
     Dates: start: 20220301, end: 20220305
  42. DIMENHYDRINATE [Concomitant]
     Active Substance: DIMENHYDRINATE
     Indication: Abdominal pain
     Route: 042
     Dates: start: 20220909, end: 20220909
  43. PREDNISONE [Concomitant]
     Active Substance: PREDNISONE
     Indication: Lupus nephritis
     Route: 048
     Dates: start: 20220925, end: 20220928
  44. PREDNISONE [Concomitant]
     Active Substance: PREDNISONE
     Route: 048
     Dates: start: 20220924, end: 20220924
  45. PREDNISONE [Concomitant]
     Active Substance: PREDNISONE
     Route: 048
     Dates: start: 20221001
  46. PREDNISONE [Concomitant]
     Active Substance: PREDNISONE
     Route: 048
     Dates: start: 20220602
  47. METOCLOPRAMIDE [Concomitant]
     Active Substance: METOCLOPRAMIDE
     Indication: Diarrhoea
     Route: 042
     Dates: start: 20221003
  48. METOCLOPRAMIDE [Concomitant]
     Active Substance: METOCLOPRAMIDE
     Route: 042
     Dates: start: 20220909, end: 20220909
  49. CALCIUM CITRATE [Concomitant]
     Active Substance: CALCIUM CITRATE
     Indication: Osteopenia
     Route: 048
     Dates: start: 20221001
  50. MYCOPHENOLIC ACID [Concomitant]
     Active Substance: MYCOPHENOLIC ACID
     Indication: Lupus nephritis
     Route: 048
     Dates: start: 20221003
  51. TETANUS TOXOID ADSORBED (VACCINE) [Concomitant]
     Active Substance: CLOSTRIDIUM TETANI TOXOID ANTIGEN (FORMALDEHYDE INACTIVATED)
     Dates: start: 1982
  52. DIPHTHERIA TOXOID NOS [Concomitant]
     Active Substance: CORYNEBACTERIUM DIPHTHERIAE TOXOID ANTIGEN (FORMALDEHYDE INACTIVATED)
     Dates: start: 1982
  53. RUBELLA VIRUS VACCINE LIVE NOS [Concomitant]
     Active Substance: RUBELLA VIRUS STRAIN WISTAR RA 27/3 LIVE ANTIGEN
     Dates: start: 1982
  54. BCG VACCINE [Concomitant]
     Active Substance: BCG VACCINE
     Dates: start: 1983
  55. POLIOMYELITIS VACCINE NOS [Concomitant]
     Active Substance: POLIOMYELITIS VACCINE
     Dates: start: 1982
  56. RACECADOTRIL [Concomitant]
     Active Substance: RACECADOTRIL
     Route: 048
     Dates: start: 20220301, end: 20220305
  57. ATORVASTATIN [Concomitant]
     Active Substance: ATORVASTATIN
     Indication: Hypertriglyceridaemia
     Route: 048
     Dates: start: 20220427, end: 20220505
  58. NIFEDIPINE [Concomitant]
     Active Substance: NIFEDIPINE
     Indication: Hypertension
     Route: 048
     Dates: start: 20201110, end: 20220301
  59. METHYLDOPA [Concomitant]
     Active Substance: METHYLDOPA
     Indication: Hypertension
     Route: 048
     Dates: start: 20201027, end: 20220306
  60. METHYLDOPA [Concomitant]
     Active Substance: METHYLDOPA
     Route: 048
     Dates: start: 20220307, end: 20220425
  61. METHYLDOPA [Concomitant]
     Active Substance: METHYLDOPA
     Route: 048
     Dates: start: 20220426, end: 20220906
  62. CALCIUM CARBONATE [Concomitant]
     Active Substance: CALCIUM CARBONATE
     Route: 048
     Dates: start: 20201014, end: 20220906
  63. ETHINYL ESTRADIOL [Concomitant]
     Active Substance: ETHINYL ESTRADIOL
     Route: 048
     Dates: start: 20201014, end: 20220906
  64. DROSPIRENONE [Concomitant]
     Active Substance: DROSPIRENONE
     Route: 048
     Dates: start: 20201014, end: 20220906
  65. BISOPROLOL [Concomitant]
     Active Substance: BISOPROLOL
     Indication: Palpitations
     Route: 048
     Dates: start: 20220421, end: 20220906
  66. CIPROFLOXACIN [Concomitant]
     Active Substance: CIPROFLOXACIN
     Indication: Diarrhoea
     Route: 048
     Dates: start: 20220301, end: 20220305
  67. LEVETIRACETAM [Concomitant]
     Active Substance: LEVETIRACETAM
     Indication: Extrapyramidal disorder
     Route: 048
     Dates: start: 20220816, end: 20220901
  68. CLONAZEPAM [Concomitant]
     Active Substance: CLONAZEPAM
     Indication: Extrapyramidal disorder
     Route: 048
     Dates: start: 20220816, end: 20220901
  69. METAMIZOLE [Concomitant]
     Active Substance: METAMIZOLE
     Indication: Abdominal pain
     Route: 042
     Dates: start: 20220909, end: 20220909
  70. RANITIDINE [Concomitant]
     Active Substance: RANITIDINE
     Indication: Abdominal pain
     Route: 042
     Dates: start: 20220909, end: 20220909
  71. MORPHINE SULFATE [Concomitant]
     Active Substance: MORPHINE SULFATE
     Indication: Abdominal pain
     Route: 042
     Dates: start: 20220913, end: 20220915
  72. CAPTOPRIL [Concomitant]
     Active Substance: CAPTOPRIL
     Indication: Abdominal pain
     Route: 048
     Dates: start: 20220913, end: 20220913
  73. SODIUM PICOSULFATE [Concomitant]
     Active Substance: SODIUM PICOSULFATE
     Indication: Abdominal pain
     Route: 048
     Dates: start: 20220915, end: 20220915
  74. GLYCERIN [Concomitant]
     Active Substance: GLYCERIN
     Indication: Abdominal pain
     Dates: start: 20220915, end: 20220915

REACTIONS (2)
  - Respiratory failure [Not Recovered/Not Resolved]
  - Weight decreased [Not Recovered/Not Resolved]

NARRATIVE: CASE EVENT DATE: 20220126
